FAERS Safety Report 8643056 (Version 3)
Quarter: 2012Q4

REPORT INFORMATION
  Report Type: 
  Country: JP (occurrence: JP)
  Receive Date: 20120629
  Receipt Date: 20121019
  Transmission Date: 20130627
  Serious: Yes (Hospitalization, Other)
  Sender: FDA-Public Use
  Company Number: JP-PFIZER INC-2012151392

PATIENT
  Age: 88 Year
  Sex: Male

DRUGS (4)
  1. CORTRIL [Suspect]
     Dosage: 20 mg, 1x/day
     Route: 048
     Dates: end: 20120612
  2. RISUMIC [Concomitant]
     Indication: ORTHOSTATIC HYPOTENSION
     Dosage: 10 mg, 2x/day
     Route: 048
     Dates: end: 20120612
  3. MAG-LAX [Concomitant]
     Indication: CONSTIPATION
     Dosage: 330 mg, 2x/day
     Route: 048
     Dates: end: 20120612
  4. SELOKEN [Concomitant]
     Indication: CHEST DISCOMFORT
     Dosage: 10 mg, 2x/day
     Route: 048
     Dates: end: 20120612

REACTIONS (1)
  - Depressed level of consciousness [Not Recovered/Not Resolved]
